FAERS Safety Report 14057939 (Version 1)
Quarter: 2017Q4

REPORT INFORMATION
  Report Type: Spontaneous
  Country: SE (occurrence: SE)
  Receive Date: 20171006
  Receipt Date: 20171006
  Transmission Date: 20180321
  Serious: Yes (Hospitalization)
  Sender: FDA-Public Use
  Company Number: SE-SA-2017SA181818

PATIENT
  Age: 66 Year
  Sex: Male

DRUGS (2)
  1. LANTUS [Suspect]
     Active Substance: INSULIN GLARGINE
     Dosage: FLUID FOR INJECTION, SOLUTION IN CYLINDER AMPULE
     Route: 051
  2. CLIKSTAR [Suspect]
     Active Substance: CLIKSTAR

REACTIONS (4)
  - Product quality issue [Unknown]
  - Acute myocardial infarction [Recovered/Resolved]
  - Ketoacidosis [Recovered/Resolved]
  - Incorrect dosage administered [Unknown]

NARRATIVE: CASE EVENT DATE: 201709
